FAERS Safety Report 5936823-7 (Version None)
Quarter: 2008Q4

REPORT INFORMATION
  Report Type: 
  Country: None (occurrence: None)
  Receive Date: 20081029
  Receipt Date: 20081013
  Transmission Date: 20090506
  Serious: Yes (Life-Threatening, Hospitalization, Other)
  Sender: FDA-Public Use
  Company Number: DSA_32512_2008

PATIENT
  Age: 47 Year
  Sex: Female

DRUGS (1)
  1. CARDIZEM LA [Suspect]
     Indication: HYPERTENSION
     Dosage: 180 MG QD ORAL
     Route: 048
     Dates: start: 20060101, end: 20060106

REACTIONS (12)
  - DEHYDRATION [None]
  - DYSPNOEA EXERTIONAL [None]
  - GENERAL PHYSICAL HEALTH DETERIORATION [None]
  - HEART RATE DECREASED [None]
  - HYPOTENSION [None]
  - LYMPHADENOPATHY [None]
  - MULTI-ORGAN FAILURE [None]
  - RASH PUSTULAR [None]
  - SHOCK [None]
  - SKIN DISORDER [None]
  - STEVENS-JOHNSON SYNDROME [None]
  - WEIGHT ABNORMAL [None]
